FAERS Safety Report 7533599-7 (Version None)
Quarter: 2011Q2

REPORT INFORMATION
  Report Type: 
  Country: None (occurrence: None)
  Receive Date: 20110608
  Receipt Date: 20110606
  Transmission Date: 20111010
  Serious: Yes (Other)
  Sender: FDA-Public Use
  Company Number: JP-PFIZER INC-2011122446

PATIENT
  Age: 33 Year
  Sex: Female

DRUGS (2)
  1. ASPIRIN [Suspect]
     Dosage: 15 MG, UNK
  2. CELECOXIB [Suspect]
     Dosage: 50 MG, UNK

REACTIONS (2)
  - LOSS OF CONSCIOUSNESS [None]
  - ASTHMA [None]
